FAERS Safety Report 6834931-X (Version None)
Quarter: 2010Q3

REPORT INFORMATION
  Report Type: 
  Country: None (occurrence: None)
  Receive Date: 20100712
  Receipt Date: 20070424
  Transmission Date: 20110219
  Serious: No
  Sender: FDA-Public Use
  Company Number: US-PFIZER INC-2007034308

PATIENT
  Sex: Female
  Weight: 77.11 kg

DRUGS (10)
  1. CHANTIX [Suspect]
     Indication: SMOKING CESSATION THERAPY
     Dates: start: 20070401, end: 20070401
  2. LIPITOR [Concomitant]
  3. ZYRTEC [Concomitant]
     Indication: URTICARIA
  4. EFFEXOR [Concomitant]
  5. CLONAZEPAM [Concomitant]
  6. MORPHINE SULFATE [Concomitant]
     Indication: PAIN
  7. MORPHINE SULFATE [Concomitant]
  8. LANTUS [Concomitant]
     Indication: DIABETES MELLITUS
  9. HUMALOG [Concomitant]
     Indication: DIABETES MELLITUS
  10. PROVIGIL [Concomitant]
     Indication: FATIGUE

REACTIONS (1)
  - FATIGUE [None]
